FAERS Safety Report 8122396-X (Version None)
Quarter: 2012Q1

REPORT INFORMATION
  Report Type: 
  Country: None (occurrence: None)
  Receive Date: 20120208
  Receipt Date: 20120202
  Transmission Date: 20120608
  Serious: Yes (Hospitalization)
  Sender: FDA-Public Use
  Company Number: US-GLAXOSMITHKLINE-A0964655A

PATIENT
  Age: 40 Year
  Sex: Female

DRUGS (3)
  1. LASIX [Concomitant]
  2. FLOLAN [Suspect]
     Indication: PRODUCT USED FOR UNKNOWN INDICATION
     Dosage: 42NGKM SEE DOSAGE TEXT
     Route: 042
     Dates: start: 19991101
  3. POTASSIUM CHLORIDE [Concomitant]

REACTIONS (3)
  - SEPSIS [None]
  - CLOSTRIDIAL INFECTION [None]
  - DIARRHOEA [None]
